FAERS Safety Report 8048155-4 (Version None)
Quarter: 2012Q1

REPORT INFORMATION
  Report Type: 
  Country: None (occurrence: None)
  Receive Date: 20120113
  Receipt Date: 20120113
  Transmission Date: 20120608
  Serious: Yes (Hospitalization)
  Sender: FDA-Public Use
  Company Number: None

PATIENT
  Age: 45 Year
  Sex: Female
  Weight: 55.7 kg

DRUGS (1)
  1. SERTRALINE HYDROCHLORIDE [Suspect]
     Dosage: 100 MG EVERY DAY PO
     Route: 048
     Dates: start: 20110703, end: 20110713

REACTIONS (2)
  - PRESYNCOPE [None]
  - LETHARGY [None]
